FAERS Safety Report 8493298-4 (Version None)
Quarter: 2012Q3

REPORT INFORMATION
  Report Type: 
  Country: None (occurrence: None)
  Receive Date: 20120706
  Receipt Date: 20120626
  Transmission Date: 20120928
  Serious: Yes (Death, Hospitalization)
  Sender: FDA-Public Use
  Company Number: NL-ROCHE-1026641

PATIENT
  Sex: Male
  Weight: 80 kg

DRUGS (16)
  1. MABTHERA [Suspect]
     Indication: CHRONIC LYMPHOCYTIC LEUKAEMIA REFRACTORY
     Route: 042
     Dates: start: 20111216
  2. DEXAMETHASONE [Suspect]
     Indication: CHRONIC LYMPHOCYTIC LEUKAEMIA REFRACTORY
     Dosage: LAST DOSE PRIOR TO SAE: 19/DEC/2011
     Route: 048
     Dates: start: 20111216
  3. CYTARABINE [Suspect]
     Indication: CHRONIC LYMPHOCYTIC LEUKAEMIA REFRACTORY
     Route: 042
     Dates: start: 20111217
  4. VALACYCLOVIR HYDROCHLORIDE [Concomitant]
     Indication: PROPHYLAXIS
     Route: 048
     Dates: start: 20120212, end: 20120324
  5. ANTI-THYMOCYTE GLOBULIN NOS [Concomitant]
     Indication: CHRONIC LYMPHOCYTIC LEUKAEMIA
     Dates: start: 20120201
  6. COTRIM [Concomitant]
     Route: 048
     Dates: start: 20120212, end: 20120324
  7. PREDNISOLONE [Concomitant]
     Indication: CHRONIC LYMPHOCYTIC LEUKAEMIA
     Dosage: CONTINOUSLY
     Route: 048
     Dates: start: 20070101
  8. MITOXANTRONE [Concomitant]
     Indication: CHRONIC LYMPHOCYTIC LEUKAEMIA
     Route: 042
     Dates: start: 20111001
  9. FLUDARABINE PHOSPHATE [Suspect]
     Indication: CHRONIC LYMPHOCYTIC LEUKAEMIA REFRACTORY
     Dosage: DATE OF LAST DOSE PRIOR TO SAE: 08/FEB/2012
     Route: 042
     Dates: start: 20120206
  10. PREDNISOLONE [Concomitant]
     Route: 048
     Dates: start: 20010101, end: 20120111
  11. VORICONAZOLE [Concomitant]
     Route: 048
     Dates: start: 20111212, end: 20111229
  12. CISPLATIN [Suspect]
     Indication: CHRONIC LYMPHOCYTIC LEUKAEMIA REFRACTORY
     Route: 042
     Dates: start: 20111216
  13. CYCLOSPORINE [Suspect]
     Indication: CHRONIC LYMPHOCYTIC LEUKAEMIA REFRACTORY
     Dosage: LAST DOSE PRIOR TO SAE: 24/MAR/2012
     Route: 048
     Dates: start: 20120208
  14. CELLCEPT [Suspect]
     Indication: CHRONIC LYMPHOCYTIC LEUKAEMIA REFRACTORY
     Dosage: LAST DOSE PRIOR TO SAE: 24/MAR/2012
     Route: 048
     Dates: start: 20120210
  15. POSACONAZOLE [Concomitant]
     Indication: PROPHYLAXIS
     Route: 048
     Dates: start: 20120210, end: 20120324
  16. COTRIM [Concomitant]
     Indication: PROPHYLAXIS
     Route: 048
     Dates: start: 20111012, end: 20111229

REACTIONS (2)
  - PNEUMONIA [None]
  - LEUKOENCEPHALOPATHY [None]
